FAERS Safety Report 23833463 (Version 1)
Quarter: 2024Q2

REPORT INFORMATION
  Report Type: Spontaneous
  Country: GB (occurrence: GB)
  Receive Date: 20240508
  Receipt Date: 20240508
  Transmission Date: 20240716
  Serious: Yes (Life-Threatening, Hospitalization, Other)
  Sender: FDA-Public Use
  Company Number: GB-009507513-2404GBR009709

PATIENT
  Age: 45 Year
  Sex: Female
  Weight: 118 kg

DRUGS (1)
  1. KEYTRUDA [Suspect]
     Active Substance: PEMBROLIZUMAB
     Indication: Malignant melanoma stage III
     Dosage: 200 MILLIGRAM, Q3W
     Dates: start: 20221021, end: 20231018

REACTIONS (54)
  - Diabetic ketoacidosis [Recovered/Resolved with Sequelae]
  - Dermoid cyst [Unknown]
  - Gastrointestinal tube insertion [Unknown]
  - Acute kidney injury [Unknown]
  - Coma scale abnormal [Unknown]
  - Hypotension [Unknown]
  - Hypophagia [Unknown]
  - Oral candidiasis [Unknown]
  - C-reactive protein increased [Unknown]
  - Blood albumin decreased [Unknown]
  - Blood magnesium increased [Unknown]
  - Cortisol abnormal [Unknown]
  - High density lipoprotein decreased [Unknown]
  - Serum ferritin increased [Unknown]
  - Glycosylated haemoglobin abnormal [Unknown]
  - Blood fibrinogen increased [Unknown]
  - Activated partial thromboplastin time prolonged [Unknown]
  - Blood phosphorus decreased [Unknown]
  - Blood creatine phosphokinase increased [Unknown]
  - Protein total decreased [Unknown]
  - Pleural effusion [Unknown]
  - Blood pH increased [Unknown]
  - Oxygen saturation decreased [Unknown]
  - Oxygen saturation increased [Unknown]
  - Haemoglobin increased [Unknown]
  - White blood cell count increased [Unknown]
  - Red blood cell count increased [Unknown]
  - Carbon dioxide decreased [Unknown]
  - Neutrophil count increased [Unknown]
  - Monocyte count increased [Unknown]
  - Blood chloride increased [Unknown]
  - Sinusitis [Unknown]
  - Bladder catheterisation [Unknown]
  - Atelectasis [Unknown]
  - Light chain analysis increased [Unknown]
  - Hepatic lesion [Unknown]
  - Hepatic steatosis [Unknown]
  - Intestinal mass [Unknown]
  - Lymphadenopathy [Unknown]
  - Complement factor C3 decreased [Unknown]
  - Haemoglobin decreased [Unknown]
  - Red blood cell count decreased [Unknown]
  - Blood triglycerides increased [Unknown]
  - Platelet count decreased [Unknown]
  - Tri-iodothyronine free decreased [Unknown]
  - Thyroxine decreased [Unknown]
  - Haematocrit decreased [Unknown]
  - Blood potassium decreased [Unknown]
  - Lymphocyte count decreased [Unknown]
  - Lipase increased [Unknown]
  - Blood luteinising hormone decreased [Unknown]
  - Blood calcium decreased [Unknown]
  - Blood alkaline phosphatase increased [Unknown]
  - Constipation [Unknown]

NARRATIVE: CASE EVENT DATE: 20240101
